FAERS Safety Report 12295548 (Version 1)
Quarter: 2016Q2

REPORT INFORMATION
  Report Type: Spontaneous
  Country: US (occurrence: None)
  Receive Date: 20160421
  Receipt Date: 20160421
  Transmission Date: 20160815
  Serious: No
  Sender: FDA-Public Use
  Company Number: None

PATIENT
  Age: 64 Year
  Sex: Male

DRUGS (1)
  1. HARVONI [Suspect]
     Active Substance: LEDIPASVIR\SOFOSBUVIR
     Indication: PRODUCT USED FOR UNKNOWN INDICATION
     Dosage: 90/400 QD ORAL
     Route: 048

REACTIONS (4)
  - Diarrhoea [None]
  - Headache [None]
  - Fatigue [None]
  - Nausea [None]

NARRATIVE: CASE EVENT DATE: 20160327
